FAERS Safety Report 6214210-4 (Version None)
Quarter: 2009Q2

REPORT INFORMATION
  Report Type: 
  Country: None (occurrence: None)
  Receive Date: 20090602
  Receipt Date: 20090519
  Transmission Date: 20091009
  Serious: Yes (Other)
  Sender: FDA-Public Use
  Company Number: 1000003935

PATIENT
  Sex: Male

DRUGS (7)
  1. CITALOPRAM HYDROBROMIDE [Suspect]
     Dosage: 10 MG (10 MG, 1 IN 1D), ORAL
     Route: 048
     Dates: start: 20070501, end: 20080801
  2. CITALOPRAM HYDROBROMIDE [Suspect]
     Dosage: (1 IN 1 D), ORAL
     Route: 048
     Dates: start: 20080801, end: 20090101
  3. AMITRIPTLINE HYDROCHLORIDE TAB [Suspect]
  4. EFFEXOR [Suspect]
  5. GAMANIL [Suspect]
  6. ROBEXETINE [Suspect]
  7. ZYBAN [Suspect]

REACTIONS (1)
  - BURNING SENSATION [None]
